FAERS Safety Report 24121493 (Version 4)
Quarter: 2025Q4

REPORT INFORMATION
  Report Type: Report from Study
  Country: CN (occurrence: CN)
  Receive Date: 20240722
  Receipt Date: 20251231
  Transmission Date: 20260117
  Serious: Yes (Death, Other)
  Sender: PFIZER
  Company Number: CN-TAKEDA-2023TUS070605

PATIENT
  Age: 65 Year
  Sex: Male

DRUGS (23)
  1. BRENTUXIMAB VEDOTIN [Suspect]
     Active Substance: BRENTUXIMAB VEDOTIN
     Indication: Non-Hodgkin^s lymphoma
     Dosage: 100 MILLIGRAM, Q3WEEKS
     Route: 041
     Dates: start: 20230428
  2. BRENTUXIMAB VEDOTIN [Suspect]
     Active Substance: BRENTUXIMAB VEDOTIN
     Indication: T-cell lymphoma
  3. ETOPOSIDE [Suspect]
     Active Substance: ETOPOSIDE
     Indication: Non-Hodgkin^s lymphoma
     Dosage: 0.08 G, 1X/DAY
     Route: 041
     Dates: start: 20230428, end: 20230430
  4. ETOPOSIDE [Suspect]
     Active Substance: ETOPOSIDE
     Indication: T-cell lymphoma
  5. CYCLOPHOSPHAMIDE [Suspect]
     Active Substance: CYCLOPHOSPHAMIDE
     Indication: Non-Hodgkin^s lymphoma
     Dosage: 2 G, 1X/DAY
     Route: 041
     Dates: start: 20230428, end: 20230430
  6. CYCLOPHOSPHAMIDE [Suspect]
     Active Substance: CYCLOPHOSPHAMIDE
     Indication: T-cell lymphoma
  7. CARBOPLATIN [Suspect]
     Active Substance: CARBOPLATIN
     Indication: Non-Hodgkin^s lymphoma
     Dosage: 0.4 G, 1X/DAY
     Route: 041
     Dates: start: 20230428, end: 20230429
  8. CARBOPLATIN [Suspect]
     Active Substance: CARBOPLATIN
     Indication: T-cell lymphoma
  9. HYZAAR [Concomitant]
     Active Substance: HYDROCHLOROTHIAZIDE\LOSARTAN POTASSIUM
     Indication: Hypertension
     Dosage: UNK
     Route: 048
     Dates: start: 2016, end: 2023
  10. ASPIRIN [Concomitant]
     Active Substance: ASPIRIN
     Indication: Cerebral infarction
     Dosage: UNK (PHARMACEUTICAL FORM: ENTERIC COATED TABLET)
     Route: 048
     Dates: start: 202209, end: 2023
  11. PLAVIX [Concomitant]
     Active Substance: CLOPIDOGREL BISULFATE
     Indication: Cerebral infarction
     Dosage: UNK
     Route: 048
     Dates: start: 202209, end: 2023
  12. SODIUM BICARBONATE [Concomitant]
     Active Substance: SODIUM BICARBONATE
     Indication: Urine alkalinisation therapy
     Dosage: 250 ML, 1X/DAY
     Route: 041
     Dates: start: 20230428, end: 20230430
  13. TROPISETRON HYDROCHLORIDE [Concomitant]
     Active Substance: TROPISETRON HYDROCHLORIDE
     Indication: Prophylaxis
     Dosage: 5 MG, 1X/DAY
     Route: 041
     Dates: start: 20230428, end: 20230502
  14. MESNA [Concomitant]
     Active Substance: MESNA
     Indication: Prophylaxis
     Dosage: 0.4 G, 3X/DAY
     Route: 041
     Dates: start: 20230428, end: 20230430
  15. TORSEMIDE [Concomitant]
     Active Substance: TORSEMIDE
     Indication: Polyuria
     Dosage: 10 MG, 1X/DAY
     Route: 041
     Dates: start: 20230429, end: 20230501
  16. POTASSIUM CHLORIDE [Concomitant]
     Active Substance: POTASSIUM CHLORIDE
     Indication: Mineral supplementation
     Dosage: 1.5 G, 1X/DAY
     Route: 048
     Dates: start: 20230424, end: 20230502
  17. CALCIUM GLUCONATE [Concomitant]
     Active Substance: CALCIUM GLUCONATE
     Indication: Nutritional supplementation
     Dosage: 1 G
     Route: 040
     Dates: start: 20230430, end: 20230430
  18. GRANULOCYTE COLONY-STIMULATING FACTOR NOS [Concomitant]
     Active Substance: GRANULOCYTE COLONY-STIMULATING FACTOR NOS
     Indication: Non-Hodgkin^s lymphoma
     Dosage: 6 MG
     Route: 058
     Dates: start: 20230430, end: 20230430
  19. GRANULOCYTE COLONY-STIMULATING FACTOR NOS [Concomitant]
     Active Substance: GRANULOCYTE COLONY-STIMULATING FACTOR NOS
     Indication: T-cell lymphoma
     Dosage: 6 MG
     Route: 058
     Dates: start: 20230502, end: 20230502
  20. BERBERINE [Concomitant]
     Active Substance: BERBERINE
     Indication: Gastrointestinal infection
     Dosage: 0.3 G, 3X/DAY
     Route: 048
     Dates: start: 20230430, end: 20230502
  21. MOXALACTAM DISODIUM [Concomitant]
     Active Substance: MOXALACTAM DISODIUM
     Indication: Antiinflammatory therapy
     Dosage: 0.5 GRAM, Q12H
     Route: 041
     Dates: start: 20230421, end: 20230502
  22. COMPOUND LIQUORICE [Concomitant]
     Indication: Antitussive therapy
     Dosage: 1 G, 3X/DAY
     Route: 048
     Dates: start: 20230424, end: 20230502
  23. SODIUM BICARBONATE [Concomitant]
     Active Substance: SODIUM BICARBONATE
     Indication: Antacid therapy
     Dosage: 0.5 G, 4X/DAY
     Route: 048
     Dates: start: 20230428, end: 20230502

REACTIONS (1)
  - Death [Fatal]

NARRATIVE: CASE EVENT DATE: 20230523
